FAERS Safety Report 4909948-2 (Version None)
Quarter: 2006Q1

REPORT INFORMATION
  Report Type: 
  Country: None (occurrence: None)
  Receive Date: 20060213
  Receipt Date: 20060202
  Transmission Date: 20060701
  Serious: Yes (Other)
  Sender: FDA-Public Use
  Company Number: PHBS2006JP02018

PATIENT
  Sex: Male

DRUGS (1)
  1. LAMISIL [Suspect]
     Route: 048
     Dates: start: 20051001

REACTIONS (2)
  - LEUKOPLAKIA ORAL [None]
  - ORAL LICHEN PLANUS [None]
